FAERS Safety Report 25035998 (Version 2)
Quarter: 2025Q2

REPORT INFORMATION
  Report Type: Spontaneous
  Country: CA (occurrence: CA)
  Receive Date: 20250304
  Receipt Date: 20250620
  Transmission Date: 20250716
  Serious: Yes (Hospitalization)
  Sender: CSL BEHRING
  Company Number: CA-BEH-2025197475

PATIENT
  Age: 30 Year
  Sex: Male

DRUGS (38)
  1. HUMAN IMMUNOGLOBULIN G [Suspect]
     Active Substance: HUMAN IMMUNOGLOBULIN G
     Indication: Guillain-Barre syndrome
     Route: 065
  2. ACETAMINOPHEN [Suspect]
     Active Substance: ACETAMINOPHEN
     Indication: Neuralgia
     Route: 062
  3. ACETAMINOPHEN [Suspect]
     Active Substance: ACETAMINOPHEN
     Route: 062
  4. ACETAMINOPHEN [Suspect]
     Active Substance: ACETAMINOPHEN
     Route: 062
  5. ACETAMINOPHEN [Suspect]
     Active Substance: ACETAMINOPHEN
     Route: 065
  6. DICLOFENAC SODIUM [Suspect]
     Active Substance: DICLOFENAC SODIUM
     Indication: Neuralgia
     Route: 065
  7. FENTANYL [Suspect]
     Active Substance: FENTANYL
     Indication: Neuralgia
     Route: 062
  8. FENTANYL [Suspect]
     Active Substance: FENTANYL
     Route: 062
  9. FENTANYL [Suspect]
     Active Substance: FENTANYL
     Dosage: 37.5 MG, QD
     Route: 062
  10. GABAPENTIN [Suspect]
     Active Substance: GABAPENTIN
     Indication: Neuralgia
     Route: 048
  11. GABAPENTIN [Suspect]
     Active Substance: GABAPENTIN
     Route: 048
  12. GABAPENTIN [Suspect]
     Active Substance: GABAPENTIN
     Route: 048
  13. GABAPENTIN [Suspect]
     Active Substance: GABAPENTIN
     Route: 048
  14. GABAPENTIN [Suspect]
     Active Substance: GABAPENTIN
     Route: 048
  15. GABAPENTIN [Suspect]
     Active Substance: GABAPENTIN
     Route: 048
  16. GABAPENTIN [Suspect]
     Active Substance: GABAPENTIN
     Route: 048
  17. GABAPENTIN [Suspect]
     Active Substance: GABAPENTIN
     Route: 065
  18. HYDROMORPHONE [Suspect]
     Active Substance: HYDROMORPHONE
     Indication: Neuralgia
     Route: 048
  19. HYDROMORPHONE [Suspect]
     Active Substance: HYDROMORPHONE
     Route: 048
  20. HYDROMORPHONE HYDROCHLORIDE [Suspect]
     Active Substance: HYDROMORPHONE HYDROCHLORIDE
     Indication: Neuralgia
     Route: 030
  21. HYDROMORPHONE HYDROCHLORIDE [Suspect]
     Active Substance: HYDROMORPHONE HYDROCHLORIDE
     Route: 030
  22. HYDROMORPHONE HYDROCHLORIDE [Suspect]
     Active Substance: HYDROMORPHONE HYDROCHLORIDE
     Route: 048
  23. HYDROMORPHONE HYDROCHLORIDE [Suspect]
     Active Substance: HYDROMORPHONE HYDROCHLORIDE
     Route: 065
  24. IBUPROFEN [Suspect]
     Active Substance: IBUPROFEN
     Indication: Neuralgia
     Route: 042
  25. KETAMINE HYDROCHLORIDE [Suspect]
     Active Substance: KETAMINE HYDROCHLORIDE
     Indication: Neuralgia
     Route: 048
  26. KETAMINE HYDROCHLORIDE [Suspect]
     Active Substance: KETAMINE HYDROCHLORIDE
     Route: 042
  27. KETAMINE HYDROCHLORIDE [Suspect]
     Active Substance: KETAMINE HYDROCHLORIDE
     Route: 042
  28. LIDOCAINE [Suspect]
     Active Substance: LIDOCAINE
     Indication: Neuralgia
     Route: 065
  29. LIDOCAINE [Suspect]
     Active Substance: LIDOCAINE
     Route: 061
  30. NABILONE [Suspect]
     Active Substance: NABILONE
     Indication: Neuralgia
     Route: 065
  31. NABILONE [Suspect]
     Active Substance: NABILONE
     Route: 042
  32. NABILONE [Suspect]
     Active Substance: NABILONE
     Route: 065
  33. NABILONE [Suspect]
     Active Substance: NABILONE
     Route: 042
  34. OLANZAPINE [Suspect]
     Active Substance: OLANZAPINE
     Indication: Product used for unknown indication
     Route: 065
  35. OLANZAPINE [Suspect]
     Active Substance: OLANZAPINE
     Route: 065
  36. PHENYTOIN [Suspect]
     Active Substance: PHENYTOIN
     Indication: Neuralgia
     Route: 065
  37. VENLAFAXINE HYDROCHLORIDE [Suspect]
     Active Substance: VENLAFAXINE HYDROCHLORIDE
     Indication: Neuralgia
     Route: 065
  38. ZOPICLONE [Suspect]
     Active Substance: ZOPICLONE
     Indication: Neuralgia
     Route: 065

REACTIONS (3)
  - Drug ineffective [Unknown]
  - Inspiratory capacity decreased [Unknown]
  - Incorrect dose administered [Unknown]
